FAERS Safety Report 4427980-2 (Version None)
Quarter: 2004Q3

REPORT INFORMATION
  Report Type: 
  Country: None (occurrence: None)
  Receive Date: 20040813
  Receipt Date: 20040804
  Transmission Date: 20050211
  Serious: Yes (Other)
  Sender: FDA-Public Use
  Company Number: 2004226967US

PATIENT
  Age: 64 Year
  Sex: Female

DRUGS (6)
  1. PROVERA [Suspect]
     Dosage: SEE IMAGE
     Dates: start: 19861211, end: 19890101
  2. PROVERA [Suspect]
     Dosage: SEE IMAGE
     Dates: start: 19901012, end: 19950504
  3. PREMARIN [Suspect]
     Dosage: SEE IMAGE
     Dates: start: 19861211, end: 19870331
  4. PREMARIN [Suspect]
     Dosage: SEE IMAGE
     Dates: start: 19950329, end: 19950922
  5. PREMPRO [Suspect]
     Dates: start: 19990601, end: 19990731
  6. CYCRIN [Suspect]
     Dates: start: 19950504, end: 19990601

REACTIONS (1)
  - BREAST CANCER FEMALE [None]
